FAERS Safety Report 21896374 (Version 2)
Quarter: 2023Q1

REPORT INFORMATION
  Report Type: Spontaneous
  Country: GB (occurrence: GB)
  Receive Date: 20230123
  Receipt Date: 20230204
  Transmission Date: 20230417
  Serious: Yes (Death, Hospitalization, Other)
  Sender: FDA-Public Use
  Company Number: GB-MHRA-MED-202301080933466020-DWMQR

PATIENT
  Age: 80 Year
  Sex: Male
  Weight: 69.9 kg

DRUGS (2)
  1. AMIODARONE [Suspect]
     Active Substance: AMIODARONE
     Indication: Adverse drug reaction
     Dosage: UNK
     Route: 065
  2. AMIODARONE [Suspect]
     Active Substance: AMIODARONE
     Indication: Atrial fibrillation

REACTIONS (8)
  - Acute respiratory distress syndrome [Fatal]
  - Death [Fatal]
  - Drug monitoring procedure not performed [Fatal]
  - Dyspnoea [Fatal]
  - Pneumonia [Fatal]
  - Pulmonary toxicity [Fatal]
  - General physical health deterioration [Fatal]
  - Medication error [Fatal]

NARRATIVE: CASE EVENT DATE: 20140705
